FAERS Safety Report 23944427 (Version 1)
Quarter: 2024Q2

REPORT INFORMATION
  Report Type: Spontaneous
  Country: CN (occurrence: CN)
  Receive Date: 20240606
  Receipt Date: 20240606
  Transmission Date: 20240716
  Serious: Yes (Hospitalization)
  Sender: FDA-Public Use
  Company Number: CN-AMGEN-CHNSP2024108925

PATIENT
  Age: 62 Year
  Sex: Male
  Weight: 50 kg

DRUGS (3)
  1. REPATHA [Suspect]
     Active Substance: EVOLOCUMAB
     Indication: Hypercholesterolaemia
     Dosage: 420 MILLIGRAM (IH ONCE)
     Route: 058
     Dates: start: 20240522, end: 20240522
  2. MEROPENEM [Concomitant]
     Active Substance: MEROPENEM
     Indication: Abdominal infection
     Dosage: 1 GRAM (3)
     Route: 042
     Dates: start: 20240522, end: 20240522
  3. Compound glycyrrhizin [Concomitant]
     Indication: Hepatic cirrhosis
     Dosage: 60 MILLILITER
     Route: 042
     Dates: start: 20240522, end: 20240522

REACTIONS (2)
  - Rash pruritic [Recovered/Resolved]
  - Eosinophil count increased [Recovering/Resolving]

NARRATIVE: CASE EVENT DATE: 20240524
